FAERS Safety Report 23146272 (Version 3)
Quarter: 2023Q4

REPORT INFORMATION
  Report Type: Spontaneous
  Country: IT (occurrence: IT)
  Receive Date: 20231104
  Receipt Date: 20231210
  Transmission Date: 20240109
  Serious: Yes (Hospitalization, Other)
  Sender: FDA-Public Use
  Company Number: IT-CELLTRION HEALTHCARE HUNGARY KFT-2022IT019911

PATIENT
  Age: 83 Year
  Sex: Male
  Weight: 62 kg

DRUGS (9)
  1. LENALIDOMIDE [Suspect]
     Active Substance: LENALIDOMIDE
     Indication: Splenic marginal zone lymphoma
     Dosage: 20 MILLIGRAM, ONCE A DAY ,(20 MILLIGRAM, QD)
     Route: 048
     Dates: start: 20221102, end: 20221107
  2. LENALIDOMIDE [Suspect]
     Active Substance: LENALIDOMIDE
     Indication: Lymphoma
  3. RITUXIMAB [Suspect]
     Active Substance: RITUXIMAB
     Indication: Lymphoma
     Dosage: 375 MILLIGRAM/KILOGRAM, WEEKLY
     Route: 042
     Dates: start: 20221103, end: 20221107
  4. RITUXIMAB [Suspect]
     Active Substance: RITUXIMAB
     Indication: Splenic marginal zone lymphoma
  5. TAFASITAMAB [Suspect]
     Active Substance: TAFASITAMAB
     Indication: Splenic marginal zone lymphoma
     Dosage: 12 MICROGRAM/KILOGRAM 1 WEEK
     Route: 065
     Dates: start: 20221103, end: 20221104
  6. ENOXAPARIN SODIUM [Concomitant]
     Active Substance: ENOXAPARIN SODIUM
     Indication: Product used for unknown indication
     Dosage: UNK
     Route: 065
     Dates: start: 20221102
  7. ACETAMINOPHEN [Concomitant]
     Active Substance: ACETAMINOPHEN
     Indication: Product used for unknown indication
     Dosage: UNK
     Route: 065
     Dates: start: 20221102, end: 20221102
  8. CHLORPHENIRAMINE MALEATE [Concomitant]
     Active Substance: CHLORPHENIRAMINE MALEATE
     Indication: Product used for unknown indication
     Dosage: UNK
     Route: 065
     Dates: start: 20221102, end: 20221102
  9. METHYLPREDNISOLONE [Concomitant]
     Active Substance: METHYLPREDNISOLONE
     Indication: Product used for unknown indication
     Dosage: UNK
     Route: 065
     Dates: start: 20221102, end: 20221102

REACTIONS (7)
  - Pyrexia [Not Recovered/Not Resolved]
  - Septic shock [Recovered/Resolved]
  - Splenic rupture [Recovered/Resolved]
  - Sepsis [Recovered/Resolved]
  - Internal haemorrhage [Unknown]
  - Off label use [Unknown]
  - Intentional product use issue [Unknown]

NARRATIVE: CASE EVENT DATE: 20221104
